FAERS Safety Report 14672173 (Version 2)
Quarter: 2018Q3

REPORT INFORMATION
  Report Type: Spontaneous
  Country: US (occurrence: US)
  Receive Date: 20180323
  Receipt Date: 20180907
  Transmission Date: 20181010
  Serious: Yes (Death, Other)
  Sender: FDA-Public Use
  Company Number: US-ASTRAZENECA-2018SE34825

PATIENT
  Age: 11608 Day
  Sex: Male

DRUGS (107)
  1. PRILOSEC [Suspect]
     Active Substance: OMEPRAZOLE MAGNESIUM
     Indication: GASTROOESOPHAGEAL REFLUX DISEASE
     Route: 048
     Dates: start: 20100520
  2. PRILOSEC [Suspect]
     Active Substance: OMEPRAZOLE MAGNESIUM
     Indication: GASTROOESOPHAGEAL REFLUX DISEASE
     Dosage: GENERIC
     Route: 048
     Dates: start: 20130320
  3. PROTONIX/PANTOPRAZOLE [Suspect]
     Active Substance: PANTOPRAZOLE SODIUM
     Indication: GASTRITIS
     Route: 065
     Dates: start: 1997, end: 2013
  4. PROTONIX/PANTOPRAZOLE [Suspect]
     Active Substance: PANTOPRAZOLE SODIUM
     Indication: GASTROOESOPHAGEAL REFLUX DISEASE
     Route: 065
     Dates: start: 20110715
  5. PROTONIX/PANTOPRAZOLE [Suspect]
     Active Substance: PANTOPRAZOLE SODIUM
     Indication: GASTRITIS
     Route: 048
     Dates: start: 20150724
  6. AMLODIPINE [Concomitant]
     Active Substance: AMLODIPINE BESYLATE
     Indication: BLOOD PRESSURE MEASUREMENT
     Dates: start: 2014
  7. HUMALOG [Concomitant]
     Active Substance: INSULIN LISPRO
     Indication: DIABETES MELLITUS
     Dates: start: 2009, end: 2015
  8. SIMVASTATIN. [Concomitant]
     Active Substance: SIMVASTATIN
     Indication: BLOOD CHOLESTEROL
     Route: 048
     Dates: start: 20100207
  9. GABAPENTIN. [Concomitant]
     Active Substance: GABAPENTIN
     Indication: PAIN
     Dates: start: 2014
  10. KLONOPIN [Concomitant]
     Active Substance: CLONAZEPAM
     Route: 048
     Dates: start: 200703
  11. TEKTURNA [Concomitant]
     Active Substance: ALISKIREN HEMIFUMARATE
     Route: 048
     Dates: start: 200703
  12. TORADOL [Concomitant]
     Active Substance: KETOROLAC TROMETHAMINE
     Dosage: IVP
     Route: 065
     Dates: start: 20100207
  13. FISH OIL [Concomitant]
     Active Substance: FISH OIL
     Route: 048
     Dates: start: 20120402
  14. IBUPROFEN. [Concomitant]
     Active Substance: IBUPROFEN
     Route: 048
     Dates: start: 20120402
  15. HUMULIN NOS [Concomitant]
     Active Substance: INSULIN HUMAN
     Dosage: 100 UNIT/ML SOLUTION
     Dates: start: 20120402
  16. QUETIAPINE. [Concomitant]
     Active Substance: QUETIAPINE
     Route: 048
     Dates: start: 20160625
  17. PRILOSEC [Suspect]
     Active Substance: OMEPRAZOLE MAGNESIUM
     Indication: GASTROOESOPHAGEAL REFLUX DISEASE
     Dosage: GENERIC
     Route: 048
     Dates: start: 2010, end: 2014
  18. PRILOSEC [Suspect]
     Active Substance: OMEPRAZOLE MAGNESIUM
     Indication: GASTROOESOPHAGEAL REFLUX DISEASE
     Dosage: GENERIC
     Route: 048
     Dates: start: 20100806
  19. PRILOSEC [Suspect]
     Active Substance: OMEPRAZOLE MAGNESIUM
     Indication: GASTROOESOPHAGEAL REFLUX DISEASE
     Dosage: GENERIC
     Route: 048
     Dates: start: 20140127
  20. PREVACID [Suspect]
     Active Substance: LANSOPRAZOLE
     Indication: GASTROOESOPHAGEAL REFLUX DISEASE
     Route: 065
     Dates: start: 1997, end: 2013
  21. PROTONIX/PANTOPRAZOLE [Suspect]
     Active Substance: PANTOPRAZOLE SODIUM
     Indication: GASTROOESOPHAGEAL REFLUX DISEASE
     Route: 065
     Dates: start: 1997, end: 2013
  22. PROTONIX/PANTOPRAZOLE [Suspect]
     Active Substance: PANTOPRAZOLE SODIUM
     Indication: GASTRITIS
     Route: 065
     Dates: start: 2015
  23. PROTONIX/PANTOPRAZOLE [Suspect]
     Active Substance: PANTOPRAZOLE SODIUM
     Indication: GASTRITIS
     Route: 065
     Dates: start: 20110715
  24. PROTONIX/PANTOPRAZOLE [Suspect]
     Active Substance: PANTOPRAZOLE SODIUM
     Indication: GASTRITIS
     Route: 048
     Dates: start: 20160503
  25. CLONAZEPAM. [Concomitant]
     Active Substance: CLONAZEPAM
     Indication: ANXIETY
     Dates: start: 2009, end: 2014
  26. LISINOPRIL. [Concomitant]
     Active Substance: LISINOPRIL
     Indication: BLOOD PRESSURE MEASUREMENT
     Route: 048
     Dates: start: 20100207
  27. ACETAMINOPHEN. [Concomitant]
     Active Substance: ACETAMINOPHEN
     Route: 048
     Dates: start: 20091119
  28. ZITHROMAX [Concomitant]
     Active Substance: AZITHROMYCIN DIHYDRATE
     Dosage: IVP
     Route: 048
     Dates: start: 20100207
  29. LAMICTAL [Concomitant]
     Active Substance: LAMOTRIGINE
     Route: 065
     Dates: start: 20110119
  30. KEFLEX [Concomitant]
     Active Substance: CEPHALEXIN
     Route: 048
     Dates: start: 20110715
  31. PRILOSEC [Suspect]
     Active Substance: OMEPRAZOLE MAGNESIUM
     Indication: GASTROOESOPHAGEAL REFLUX DISEASE
     Route: 048
     Dates: start: 1997, end: 2013
  32. PROTONIX/PANTOPRAZOLE [Suspect]
     Active Substance: PANTOPRAZOLE SODIUM
     Indication: GASTRITIS
     Dosage: GENERIC
     Route: 065
     Dates: start: 2011, end: 2016
  33. PROTONIX/PANTOPRAZOLE [Suspect]
     Active Substance: PANTOPRAZOLE SODIUM
     Indication: GASTROOESOPHAGEAL REFLUX DISEASE
     Route: 048
     Dates: start: 20160625
  34. LOSARTAN. [Concomitant]
     Active Substance: LOSARTAN
     Indication: BLOOD PRESSURE MEASUREMENT
     Dates: start: 2014
  35. RENVELA [Concomitant]
     Active Substance: SEVELAMER CARBONATE
     Route: 048
     Dates: start: 20150724
  36. LISINOPRIL. [Concomitant]
     Active Substance: LISINOPRIL
     Indication: BLOOD PRESSURE MEASUREMENT
     Dates: start: 2010, end: 2013
  37. KLONOPIN [Concomitant]
     Active Substance: CLONAZEPAM
     Route: 048
     Dates: start: 20120307
  38. NEURONTIN [Concomitant]
     Active Substance: GABAPENTIN
     Route: 048
     Dates: start: 200703
  39. ZOCON [Concomitant]
     Route: 065
     Dates: start: 20100520
  40. CLONAZEPAM. [Concomitant]
     Active Substance: CLONAZEPAM
     Dosage: IVP
     Route: 065
     Dates: start: 20100207
  41. SEROQUEL [Concomitant]
     Active Substance: QUETIAPINE FUMARATE
     Route: 048
     Dates: start: 20160503
  42. PRILOSEC [Suspect]
     Active Substance: OMEPRAZOLE MAGNESIUM
     Indication: GASTROOESOPHAGEAL REFLUX DISEASE
     Dosage: GENERIC
     Route: 048
     Dates: start: 20100723
  43. PREVACID [Suspect]
     Active Substance: LANSOPRAZOLE
     Indication: GASTROOESOPHAGEAL REFLUX DISEASE
     Route: 048
     Dates: start: 20120402
  44. PREVACID [Suspect]
     Active Substance: LANSOPRAZOLE
     Indication: GASTROOESOPHAGEAL REFLUX DISEASE
     Route: 048
     Dates: start: 20130502
  45. PROTONIX/PANTOPRAZOLE [Suspect]
     Active Substance: PANTOPRAZOLE SODIUM
     Indication: DYSPEPSIA
     Dosage: GENERIC
     Route: 065
     Dates: start: 2011, end: 2016
  46. PROTONIX/PANTOPRAZOLE [Suspect]
     Active Substance: PANTOPRAZOLE SODIUM
     Indication: DYSPEPSIA
     Route: 065
     Dates: start: 2004
  47. PROTONIX/PANTOPRAZOLE [Suspect]
     Active Substance: PANTOPRAZOLE SODIUM
     Indication: DYSPEPSIA
     Route: 065
     Dates: start: 2011
  48. PROTONIX/PANTOPRAZOLE [Suspect]
     Active Substance: PANTOPRAZOLE SODIUM
     Indication: DYSPEPSIA
     Route: 065
     Dates: start: 20110715
  49. PROTONIX/PANTOPRAZOLE [Suspect]
     Active Substance: PANTOPRAZOLE SODIUM
     Indication: DYSPEPSIA
     Route: 048
     Dates: start: 20160503
  50. LANTUS [Concomitant]
     Active Substance: INSULIN GLARGINE
     Indication: DIABETES MELLITUS
     Dates: start: 2010, end: 2014
  51. PREVACID [Suspect]
     Active Substance: LANSOPRAZOLE
     Indication: GASTROOESOPHAGEAL REFLUX DISEASE
     Route: 065
     Dates: start: 2004, end: 2009
  52. PREVACID [Suspect]
     Active Substance: LANSOPRAZOLE
     Indication: GASTROOESOPHAGEAL REFLUX DISEASE
     Route: 065
     Dates: start: 2007, end: 2009
  53. PREVACID [Suspect]
     Active Substance: LANSOPRAZOLE
     Indication: GASTROOESOPHAGEAL REFLUX DISEASE
     Dosage: ONE TIME A DAY
     Route: 065
     Dates: start: 20090903
  54. PROTONIX/PANTOPRAZOLE [Suspect]
     Active Substance: PANTOPRAZOLE SODIUM
     Indication: GASTROOESOPHAGEAL REFLUX DISEASE
     Dosage: GENERIC
     Route: 065
     Dates: start: 2011, end: 2016
  55. PROTONIX/PANTOPRAZOLE [Suspect]
     Active Substance: PANTOPRAZOLE SODIUM
     Indication: GASTRITIS
     Route: 065
     Dates: start: 2004
  56. PROTONIX/PANTOPRAZOLE [Suspect]
     Active Substance: PANTOPRAZOLE SODIUM
     Indication: GASTRITIS
     Route: 065
     Dates: start: 2006
  57. PROTONIX/PANTOPRAZOLE [Suspect]
     Active Substance: PANTOPRAZOLE SODIUM
     Indication: GASTROOESOPHAGEAL REFLUX DISEASE
     Route: 065
     Dates: start: 2006
  58. PROTONIX/PANTOPRAZOLE [Suspect]
     Active Substance: PANTOPRAZOLE SODIUM
     Indication: GASTRITIS
     Route: 048
     Dates: start: 20160625
  59. RENVELA [Concomitant]
     Active Substance: SEVELAMER CARBONATE
     Dates: start: 2014, end: 2015
  60. FENTANYL. [Concomitant]
     Active Substance: FENTANYL
     Indication: PAIN
     Dates: start: 2010, end: 2016
  61. LISINOPRIL. [Concomitant]
     Active Substance: LISINOPRIL
     Indication: BLOOD PRESSURE MEASUREMENT
     Route: 048
     Dates: start: 20130502
  62. ZOLOFT [Concomitant]
     Active Substance: SERTRALINE HYDROCHLORIDE
     Dates: start: 200703
  63. ZOLOFT [Concomitant]
     Active Substance: SERTRALINE HYDROCHLORIDE
     Dates: start: 20110119
  64. ROBITUSSIN DM [Concomitant]
     Active Substance: DEXTROMETHORPHAN HYDROBROMIDE\GUAIFENESIN
     Dosage: 2 TSP PO
     Route: 048
     Dates: start: 20090621
  65. CALCIUM GLUCONATE. [Concomitant]
     Active Substance: CALCIUM GLUCONATE
     Dosage: 10 PERCENT 10 ML IVP
     Route: 065
     Dates: start: 20120308
  66. FAMOTIDINE. [Concomitant]
     Active Substance: FAMOTIDINE
     Route: 048
     Dates: start: 20150726
  67. PRILOSEC [Suspect]
     Active Substance: OMEPRAZOLE MAGNESIUM
     Indication: GASTROOESOPHAGEAL REFLUX DISEASE
     Route: 048
     Dates: start: 1997, end: 2007
  68. PREVACID [Suspect]
     Active Substance: LANSOPRAZOLE
     Indication: GASTROOESOPHAGEAL REFLUX DISEASE
     Route: 048
     Dates: start: 20070129
  69. PROTONIX/PANTOPRAZOLE [Suspect]
     Active Substance: PANTOPRAZOLE SODIUM
     Indication: GASTRITIS
     Route: 065
     Dates: start: 2011
  70. PROTONIX/PANTOPRAZOLE [Suspect]
     Active Substance: PANTOPRAZOLE SODIUM
     Indication: DYSPEPSIA
     Route: 065
     Dates: start: 2015
  71. PROTONIX/PANTOPRAZOLE [Suspect]
     Active Substance: PANTOPRAZOLE SODIUM
     Indication: GASTROOESOPHAGEAL REFLUX DISEASE
     Route: 048
     Dates: start: 20160503
  72. PROTONIX/PANTOPRAZOLE [Suspect]
     Active Substance: PANTOPRAZOLE SODIUM
     Indication: DYSPEPSIA
     Route: 048
     Dates: start: 20160625
  73. CARVEDILOL. [Concomitant]
     Active Substance: CARVEDILOL
     Indication: BLOOD PRESSURE MEASUREMENT
     Dates: start: 2014
  74. LEVOFLOXACIN. [Concomitant]
     Active Substance: LEVOFLOXACIN
     Indication: ANTIBIOTIC THERAPY
     Dates: start: 2011
  75. SIMVASTATIN. [Concomitant]
     Active Substance: SIMVASTATIN
     Indication: BLOOD CHOLESTEROL
     Dates: start: 2010
  76. FENTANYL. [Concomitant]
     Active Substance: FENTANYL
     Indication: PAIN
     Dosage: EVERY THREE DAYS
     Route: 065
     Dates: start: 20120307
  77. SODIUM BICARBONATE. [Concomitant]
     Active Substance: SODIUM BICARBONATE
     Dosage: 8.4 PERCENT SOLUTION MEQ IVP
     Dates: start: 20090621
  78. LISINOPRIL. [Concomitant]
     Active Substance: LISINOPRIL
     Route: 048
     Dates: start: 20100520
  79. CLONAZEPAM. [Concomitant]
     Active Substance: CLONAZEPAM
     Route: 048
     Dates: start: 20100723
  80. VICODIN ES [Concomitant]
     Active Substance: ACETAMINOPHEN\HYDROCODONE BITARTRATE
     Dosage: TWICE A DAY
     Route: 065
     Dates: start: 20100913
  81. DILAUDID [Concomitant]
     Active Substance: HYDROMORPHONE HYDROCHLORIDE
     Dosage: 2 MG IVP
     Route: 065
     Dates: start: 20111031
  82. DEXTROSE. [Concomitant]
     Active Substance: DEXTROSE
     Dosage: 50 PERCENT SOLUTION
     Route: 065
     Dates: start: 20111031
  83. NORVASC [Concomitant]
     Active Substance: AMLODIPINE BESYLATE
     Route: 048
     Dates: start: 20160503
  84. PRILOSEC [Suspect]
     Active Substance: OMEPRAZOLE MAGNESIUM
     Indication: GASTROOESOPHAGEAL REFLUX DISEASE
     Dosage: GENERIC
     Route: 048
     Dates: start: 20070730
  85. PREVACID [Suspect]
     Active Substance: LANSOPRAZOLE
     Indication: GASTROOESOPHAGEAL REFLUX DISEASE
     Route: 048
     Dates: start: 20090106
  86. PROTONIX/PANTOPRAZOLE [Suspect]
     Active Substance: PANTOPRAZOLE SODIUM
     Indication: DYSPEPSIA
     Route: 065
     Dates: start: 2006
  87. ZANTAC [Concomitant]
     Active Substance: RANITIDINE HYDROCHLORIDE
     Dates: start: 1998, end: 1999
  88. INSULIN REGULAR HUMAN [Concomitant]
     Dosage: 10 UNITS IVP
     Dates: start: 20071027
  89. COLACE [Concomitant]
     Active Substance: DOCUSATE SODIUM
     Route: 048
     Dates: start: 20100520
  90. LOPRESSOR [Concomitant]
     Active Substance: METOPROLOL TARTRATE
     Route: 048
     Dates: start: 20110520
  91. TYLENOL [Concomitant]
     Active Substance: ACETAMINOPHEN
     Indication: PAIN
     Route: 048
     Dates: start: 20110520
  92. BACTRIM [Concomitant]
     Active Substance: SULFAMETHOXAZOLE\TRIMETHOPRIM
     Dosage: 800?160 MG
     Route: 048
     Dates: start: 20110715
  93. LOSARTAN. [Concomitant]
     Active Substance: LOSARTAN
     Route: 048
     Dates: start: 20160625
  94. PRILOSEC [Suspect]
     Active Substance: OMEPRAZOLE MAGNESIUM
     Indication: GASTROOESOPHAGEAL REFLUX DISEASE
     Dosage: GENERIC
     Route: 048
     Dates: start: 20111030
  95. PROTONIX/PANTOPRAZOLE [Suspect]
     Active Substance: PANTOPRAZOLE SODIUM
     Indication: DYSPEPSIA
     Route: 065
     Dates: start: 1997, end: 2013
  96. PROTONIX/PANTOPRAZOLE [Suspect]
     Active Substance: PANTOPRAZOLE SODIUM
     Indication: GASTROOESOPHAGEAL REFLUX DISEASE
     Route: 065
     Dates: start: 2004
  97. PROTONIX/PANTOPRAZOLE [Suspect]
     Active Substance: PANTOPRAZOLE SODIUM
     Indication: GASTROOESOPHAGEAL REFLUX DISEASE
     Route: 065
     Dates: start: 2011
  98. PROTONIX/PANTOPRAZOLE [Suspect]
     Active Substance: PANTOPRAZOLE SODIUM
     Indication: GASTROOESOPHAGEAL REFLUX DISEASE
     Route: 065
     Dates: start: 2015
  99. PROTONIX/PANTOPRAZOLE [Suspect]
     Active Substance: PANTOPRAZOLE SODIUM
     Indication: DYSPEPSIA
     Route: 048
     Dates: start: 20150724
  100. PROTONIX/PANTOPRAZOLE [Suspect]
     Active Substance: PANTOPRAZOLE SODIUM
     Indication: GASTROOESOPHAGEAL REFLUX DISEASE
     Route: 048
     Dates: start: 20150724
  101. HUMALOG [Concomitant]
     Active Substance: INSULIN LISPRO
     Indication: DIABETES MELLITUS
     Dosage: 3 UNITS BEFORE MEAL
     Dates: start: 200703
  102. RENVELA [Concomitant]
     Active Substance: SEVELAMER CARBONATE
     Route: 048
     Dates: start: 20160503
  103. ATORVASTATIN [Concomitant]
     Active Substance: ATORVASTATIN
     Indication: BLOOD CHOLESTEROL
     Dates: start: 2015
  104. ZOFRAN [Concomitant]
     Active Substance: ONDANSETRON HYDROCHLORIDE
     Dosage: 4 MG IVP
     Dates: start: 20090621
  105. KAYEXALATE [Concomitant]
     Active Substance: SODIUM POLYSTYRENE SULFONATE
     Dates: start: 20090621
  106. MORPHINE SULFATE. [Concomitant]
     Active Substance: MORPHINE SULFATE
     Dosage: IVP
     Route: 065
     Dates: start: 20100207
  107. DOCUSATE SODIUM. [Concomitant]
     Active Substance: DOCUSATE SODIUM
     Route: 048
     Dates: start: 20160625

REACTIONS (6)
  - Hypoglycaemia [Fatal]
  - Respiratory arrest [Fatal]
  - Chronic kidney disease [Unknown]
  - End stage renal disease [Fatal]
  - Type 1 diabetes mellitus [Fatal]
  - Acute kidney injury [Unknown]

NARRATIVE: CASE EVENT DATE: 20100804
